FAERS Safety Report 6899624-1 (Version None)
Quarter: 2010Q3

REPORT INFORMATION
  Report Type: 
  Country: None (occurrence: None)
  Receive Date: 20100803
  Receipt Date: 20100728
  Transmission Date: 20110219
  Serious: Yes (Other)
  Sender: FDA-Public Use
  Company Number: US-CEPHALON-US013573

PATIENT
  Sex: Female
  Weight: 54 kg

DRUGS (3)
  1. ACTIQ [Suspect]
     Indication: CROHN'S DISEASE
     Route: 002
     Dates: start: 19980101, end: 20080101
  2. OVCON-35 [Concomitant]
     Indication: CONTRACEPTION
     Dosage: DAILY: 1 TAB/CAP; UNIT: 1 TAB/CAP; FORM: 1 TAB/CAP;
     Route: 048
  3. DURAGESIC-100 [Concomitant]
     Indication: PAIN
     Route: 062

REACTIONS (2)
  - DENTAL CARIES [None]
  - DRUG PRESCRIBING ERROR [None]
